FAERS Safety Report 8021354-3 (Version None)
Quarter: 2012Q1

REPORT INFORMATION
  Report Type: 
  Country: None (occurrence: None)
  Receive Date: 20120104
  Receipt Date: 20111221
  Transmission Date: 20120608
  Serious: Yes (Death, Life-Threatening, Hospitalization, Other)
  Sender: FDA-Public Use
  Company Number: ES-CELGENEUS-144-50794-11122990

PATIENT
  Sex: Male
  Weight: 61 kg

DRUGS (11)
  1. ALLOPURINOL [Concomitant]
     Dosage: 300 DOSAGE FORMS
     Route: 065
     Dates: start: 20071205, end: 20071208
  2. FLURAZEPAM [Concomitant]
     Indication: INSOMNIA
     Dosage: 30 MILLIGRAM
     Route: 065
     Dates: start: 20071227, end: 20080108
  3. IBUPROFEN [Concomitant]
     Indication: ARTHRALGIA
     Route: 065
     Dates: start: 20070913, end: 20070922
  4. ACETAMINOPHEN [Concomitant]
     Indication: ARTHRALGIA
     Dosage: 2600 MILLIGRAM
     Route: 065
     Dates: start: 20071011, end: 20071025
  5. VIDAZA [Suspect]
     Dosage: 75 MILLIGRAM/SQ. METER
     Route: 041
     Dates: start: 20071211, end: 20071219
  6. ASPIRIN [Concomitant]
     Indication: THROMBOSIS PROPHYLAXIS
     Dosage: 100 MILLIGRAM
     Route: 065
     Dates: start: 20071018, end: 20071025
  7. FENTANYL [Concomitant]
     Indication: ARTHRALGIA
     Dosage: 900 MICROGRAM
     Route: 065
     Dates: start: 20071105, end: 20071115
  8. RABEPRAZOLE SODIUM [Concomitant]
     Indication: GASTRITIS PROPHYLAXIS
     Dosage: 20 DOSAGE FORMS
     Route: 065
     Dates: start: 20070913
  9. DIAZEPAM [Concomitant]
     Route: 065
     Dates: start: 20070927, end: 20071011
  10. PREDNISONE TAB [Concomitant]
     Indication: ARTHRALGIA
     Dosage: 5 DOSAGE FORMS
     Route: 065
     Dates: start: 20071105, end: 20080108
  11. METOCLOPRAMIDE [Concomitant]
     Indication: VOMITING
     Dosage: 30 MILLIGRAM
     Route: 065
     Dates: start: 20071027, end: 20071105

REACTIONS (3)
  - NEUTROPENIA [None]
  - ESCHERICHIA SEPSIS [None]
  - GASTROINTESTINAL HAEMORRHAGE [None]
